FAERS Safety Report 4846884-4 (Version None)
Quarter: 2005Q4

REPORT INFORMATION
  Report Type: 
  Country: None (occurrence: None)
  Receive Date: 20051202
  Receipt Date: 20051116
  Transmission Date: 20060501
  Serious: Yes (Other)
  Sender: FDA-Public Use
  Company Number: DSA_27464_2005

PATIENT
  Age: 72 Year
  Sex: Female

DRUGS (4)
  1. DILTIAZEM HCL [Suspect]
     Indication: HYPERTENSION
     Dosage: 120 MG PO
     Route: 048
     Dates: start: 20040601
  2. ATORVASTATIN [Suspect]
     Indication: HYPERCHOLESTEROLAEMIA
     Dosage: 10 MG PO
     Route: 048
     Dates: start: 20040721, end: 20041222
  3. ATENOLOL [Suspect]
     Indication: HYPERTENSION
     Dosage: 100 MG PO
     Route: 048
     Dates: start: 20000101
  4. MODOPAR [Suspect]
     Indication: TREMOR
     Dosage: DF PO
     Route: 048
     Dates: start: 19990101

REACTIONS (3)
  - CONDITION AGGRAVATED [None]
  - DRUG INTERACTION [None]
  - INTENTION TREMOR [None]
